FAERS Safety Report 8140979 (Version 4)
Quarter: 2012Q4

REPORT INFORMATION
  Report Type: 
  Country: US (occurrence: US)
  Receive Date: 20110918
  Receipt Date: 20121015
  Transmission Date: 20130627
  Serious: Yes (Other)
  Sender: FDA-Public Use
  Company Number: US-ASTRAZENECA-2011SE53909

PATIENT
  Age: 62 Year
  Sex: Female
  Weight: 62.1 kg

DRUGS (9)
  1. NEXIUM [Suspect]
     Indication: DYSPEPSIA
     Route: 048
  2. NEXIUM [Suspect]
     Indication: GASTROOESOPHAGEAL REFLUX PROPHYLAXIS
     Route: 048
  3. SINGULAIR [Concomitant]
     Indication: ASTHMA
  4. DETROL LA [Concomitant]
     Indication: BLADDER CANCER
  5. ESTRADIOL [Concomitant]
     Indication: OESTROGEN REPLACEMENT THERAPY
  6. AMITRIPTYLINE [Concomitant]
     Indication: MIGRAINE
  7. VITAMINS [Concomitant]
  8. PRILOSEC [Concomitant]
     Indication: GASTRIC DISORDER
  9. PREVACID [Concomitant]
     Indication: GASTRIC DISORDER

REACTIONS (5)
  - Bladder cancer recurrent [Unknown]
  - Blood cholesterol increased [Unknown]
  - Hypothyroidism [Unknown]
  - Off label use [Unknown]
  - Off label use [Unknown]
